FAERS Safety Report 4852829-3 (Version None)
Quarter: 2005Q4

REPORT INFORMATION
  Report Type: 
  Country: None (occurrence: None)
  Receive Date: 20051212
  Receipt Date: 20051212
  Transmission Date: 20060501
  Serious: Yes (Death, Life-Threatening, Hospitalization)
  Sender: FDA-Public Use
  Company Number: None

PATIENT
  Sex: Female

DRUGS (2)
  1. FLUDARABINE [Suspect]
     Indication: ACUTE LYMPHOCYTIC LEUKAEMIA
     Dosage: 43 MG DAILY  IV DRIP
     Route: 041
     Dates: start: 20050923, end: 20050926
  2. BUSULFAN [Suspect]
     Indication: ACUTE LYMPHOCYTIC LEUKAEMIA
     Dosage: 225 MG DAILY IV DRIP
     Route: 041
     Dates: start: 20050924, end: 20050927

REACTIONS (8)
  - ASCITES [None]
  - BLOOD BILIRUBIN INCREASED [None]
  - HEPATOSPLENOMEGALY [None]
  - HYPOXIA [None]
  - ILEUS [None]
  - LUNG INFILTRATION [None]
  - VENOOCCLUSIVE LIVER DISEASE [None]
  - WEIGHT INCREASED [None]
